FAERS Safety Report 21035250 (Version 2)
Quarter: 2022Q3

REPORT INFORMATION
  Report Type: Spontaneous
  Country: US (occurrence: US)
  Receive Date: 20220701
  Receipt Date: 20220712
  Transmission Date: 20221027
  Serious: No
  Sender: FDA-Public Use
  Company Number: US-ORGANON-O2206USA002377

PATIENT
  Sex: Female

DRUGS (2)
  1. DULERA [Suspect]
     Active Substance: FORMOTEROL FUMARATE DIHYDRATE\MOMETASONE FUROATE
     Dosage: 200/5MCG
     Dates: start: 20220622
  2. DULERA [Suspect]
     Active Substance: FORMOTEROL FUMARATE DIHYDRATE\MOMETASONE FUROATE
     Dosage: 200/5 MCG
     Dates: start: 20220624

REACTIONS (4)
  - Device malfunction [Unknown]
  - Poor quality device used [Unknown]
  - Poor quality device used [Unknown]
  - No adverse event [Unknown]

NARRATIVE: CASE EVENT DATE: 20220622
